FAERS Safety Report 9080699 (Version 1)
Quarter: 2013Q1

REPORT INFORMATION
  Report Type: Report from Study
  Country: US (occurrence: US)
  Receive Date: 20130130
  Receipt Date: 20130130
  Transmission Date: 20140127
  Serious: No
  Sender: FDA-Public Use
  Company Number: US-ABBOTT-12P-163-0967327-00

PATIENT
  Sex: Female
  Weight: 76.27 kg

DRUGS (1)
  1. HUMIRA 40 MG/0.8 ML PEN [Suspect]
     Indication: RHEUMATOID ARTHRITIS
     Dates: start: 200908, end: 201204

REACTIONS (2)
  - Injection site swelling [Recovered/Resolved]
  - Hypersensitivity [Recovered/Resolved]
